FAERS Safety Report 13723807 (Version 1)
Quarter: 2017Q3

REPORT INFORMATION
  Report Type: Spontaneous
  Country: US (occurrence: US)
  Receive Date: 20170706
  Receipt Date: 20170706
  Transmission Date: 20171127
  Serious: No
  Sender: FDA-Public Use
  Company Number: US-JNJFOC-20161217870

PATIENT
  Age: 93 Year
  Sex: Female
  Weight: 50.8 kg

DRUGS (9)
  1. IMODIUM MULTI-SYMPTOM RELIEF [Suspect]
     Active Substance: DIMETHICONE\LOPERAMIDE HYDROCHLORIDE
     Indication: FLATULENCE
     Dosage: PATIENT TOOK 2 CAPLETS ON DAY 1, 1 CAPLET ON DAY 2, 0 CAPLET ON DAY 3 AND 1CAPLET ON DAY 4.
     Route: 048
     Dates: start: 20161216
  2. VITAMIN D3 [Concomitant]
     Active Substance: CHOLECALCIFEROL
     Route: 065
  3. IMODIUM MULTI-SYMPTOM RELIEF [Suspect]
     Active Substance: DIMETHICONE\LOPERAMIDE HYDROCHLORIDE
     Indication: DIARRHOEA
     Dosage: PATIENT TOOK 2 CAPLETS ON DAY 1, 1 CAPLET ON DAY 2, 0 CAPLET ON DAY 3 AND 1CAPLET ON DAY 4.
     Route: 048
     Dates: start: 20161216
  4. ATENOLOL. [Concomitant]
     Active Substance: ATENOLOL
     Indication: BLOOD PRESSURE ABNORMAL
     Route: 065
  5. LOSARTIN [Concomitant]
     Active Substance: LOSARTAN
     Indication: BLOOD PRESSURE ABNORMAL
     Route: 065
  6. SIMVASTATIN. [Concomitant]
     Active Substance: SIMVASTATIN
     Indication: BLOOD CHOLESTEROL ABNORMAL
     Route: 065
  7. VITAMIN E [Concomitant]
     Active Substance: .ALPHA.-TOCOPHEROL
     Route: 065
  8. LEVOTHYROXIN [Concomitant]
     Active Substance: LEVOTHYROXINE
     Indication: THYROID DISORDER
     Route: 065
  9. VITAMINA B12 [Concomitant]
     Route: 065

REACTIONS (1)
  - Drug ineffective [Unknown]
